FAERS Safety Report 12935783 (Version 1)
Quarter: 2016Q4

REPORT INFORMATION
  Report Type: Spontaneous
  Country: DE (occurrence: DE)
  Receive Date: 20161114
  Receipt Date: 20161114
  Transmission Date: 20170207
  Serious: Yes (Other)
  Sender: FDA-Public Use
  Company Number: DE-AMGEN-DEUSP2016159155

PATIENT
  Age: 78 Year
  Sex: Male

DRUGS (3)
  1. IMLYGIC [Suspect]
     Active Substance: TALIMOGENE LAHERPAREPVEC
     Indication: METASTATIC MALIGNANT MELANOMA
     Dosage: 4 ML, UNK, 4ML (10^6 PFU/ML)
     Route: 065
     Dates: start: 20160825
  2. IPILIMUMAB [Concomitant]
     Active Substance: IPILIMUMAB
     Dosage: UNK
     Dates: start: 2016
  3. NIVOLUMAB [Concomitant]
     Active Substance: NIVOLUMAB
     Dosage: UNK
     Dates: start: 2016

REACTIONS (8)
  - Pyrexia [Unknown]
  - Pain in extremity [Unknown]
  - Metastases to lymph nodes [Unknown]
  - Hepatic lesion [Unknown]
  - Influenza [Unknown]
  - Arthralgia [Unknown]
  - Metastasis [Unknown]
  - Chills [Recovered/Resolved]

NARRATIVE: CASE EVENT DATE: 2016
